FAERS Safety Report 25648368 (Version 1)
Quarter: 2025Q3

REPORT INFORMATION
  Report Type: Spontaneous
  Country: US (occurrence: US)
  Receive Date: 20250806
  Receipt Date: 20250806
  Transmission Date: 20251021
  Serious: No
  Sender: ROCHE
  Company Number: US-ROCHE-10000356391

PATIENT
  Age: 38 Year
  Sex: Female

DRUGS (1)
  1. OCREVUS ZUNOVO [Suspect]
     Active Substance: HYALURONIDASE-OCSQ\OCRELIZUMAB
     Indication: Multiple sclerosis
     Route: 050
     Dates: start: 20250724

REACTIONS (3)
  - Pain [Recovered/Resolved]
  - Sensitive skin [Not Recovered/Not Resolved]
  - Facial discomfort [Recovered/Resolved]

NARRATIVE: CASE EVENT DATE: 20250724
